FAERS Safety Report 9234306 (Version 1)
Quarter: 2013Q2

REPORT INFORMATION
  Report Type: Report from Study
  Country: BR (occurrence: BR)
  Receive Date: 20130416
  Receipt Date: 20130416
  Transmission Date: 20140414
  Serious: Yes (Other)
  Sender: FDA-Public Use
  Company Number: BR-ROCHE-1199469

PATIENT
  Age: 46 Year
  Sex: Female
  Weight: 59 kg

DRUGS (10)
  1. MABTHERA [Suspect]
     Indication: RHEUMATOID ARTHRITIS
     Dosage: DATE OF THE LAST INFUSION : 07/MAR/2013
     Route: 042
     Dates: start: 20130224
  2. CALCITRIOL [Concomitant]
  3. ALLOPURINOL [Concomitant]
  4. SIMVASTATIN [Concomitant]
  5. FOLIC ACID [Concomitant]
  6. DIPYRONE [Concomitant]
  7. ACETYLSALICYLIC ACID [Concomitant]
  8. NIFEDIPINE [Concomitant]
     Route: 065
  9. ALENDRONATE [Concomitant]
     Route: 065
  10. CARBAMAZEPINE [Concomitant]
     Route: 065

REACTIONS (2)
  - Drug ineffective [Unknown]
  - Sickle cell anaemia [Unknown]
